FAERS Safety Report 6035998-1 (Version None)
Quarter: 2009Q1

REPORT INFORMATION
  Report Type: 
  Country: None (occurrence: None)
  Receive Date: 20090113
  Receipt Date: 20090108
  Transmission Date: 20090719
  Serious: No
  Sender: FDA-Public Use
  Company Number: US-JNJFOC-20090101835

PATIENT
  Sex: Female
  Weight: 68.95 kg

DRUGS (5)
  1. DURAGESIC-100 [Suspect]
     Indication: ARTHRITIS
     Dosage: USING 25 MCG/HR
     Route: 062
  2. FENTANYL TRANSDERMAL SYSTEM [Suspect]
     Indication: ARTHRITIS
     Dosage: USING 12.5 MCG/HR
     Route: 062
  3. HORMONE PATCH [Concomitant]
     Indication: MENOPAUSE
     Route: 062
  4. NORCO [Concomitant]
     Indication: PAIN
     Dosage: 10/325 MG TABLET T.I.D
     Route: 048
  5. THYROID MEDICATION [Concomitant]
     Indication: THYROID DISORDER
     Route: 065

REACTIONS (4)
  - DRUG INEFFECTIVE [None]
  - INAPPROPRIATE SCHEDULE OF DRUG ADMINISTRATION [None]
  - PRODUCT QUALITY ISSUE [None]
  - WRONG TECHNIQUE IN DRUG USAGE PROCESS [None]
